FAERS Safety Report 6294800-3 (Version None)
Quarter: 2009Q3

REPORT INFORMATION
  Report Type: 
  Country: None (occurrence: None)
  Receive Date: 20090731
  Receipt Date: 20090731
  Transmission Date: 20100115
  Serious: Yes (Death)
  Sender: FDA-Public Use
  Company Number: None

PATIENT
  Age: 22 Year
  Sex: Male
  Weight: 63.5036 kg

DRUGS (2)
  1. ATIVAN [Suspect]
     Indication: ANXIETY
     Dosage: 1.5/DAY PO
     Route: 048
     Dates: start: 20071119, end: 20081218
  2. ATIVAN [Suspect]
     Indication: PANIC ATTACK
     Dosage: 1.5/DAY PO
     Route: 048
     Dates: start: 20071119, end: 20081218

REACTIONS (3)
  - ANXIETY [None]
  - COMPLETED SUICIDE [None]
  - PARANOIA [None]
